FAERS Safety Report 4612760-5 (Version None)
Quarter: 2005Q1

REPORT INFORMATION
  Report Type: 
  Country: None (occurrence: None)
  Receive Date: 20050318
  Receipt Date: 20041026
  Transmission Date: 20050727
  Serious: No
  Sender: FDA-Public Use
  Company Number: NL-MERCK-0411NLD00001

PATIENT
  Age: 63 Year
  Sex: Female

DRUGS (13)
  1. VIOXX [Suspect]
     Indication: ANKYLOSING SPONDYLITIS
     Route: 048
     Dates: start: 19990101, end: 20041001
  2. ACETYLCYSTEINE [Concomitant]
     Route: 048
     Dates: start: 20031216
  3. PREDNISOLONE [Concomitant]
     Route: 065
     Dates: start: 20031219
  4. DOXYCYCLINE [Concomitant]
     Route: 065
     Dates: start: 20031201
  5. CROMOLYN SODIUM [Concomitant]
     Route: 065
     Dates: start: 20040101
  6. LISINOPRIL [Concomitant]
     Route: 065
     Dates: start: 20040101
  7. FLUTICASONE PROPIONATE AND SALMETEROL XINAFOATE [Concomitant]
     Route: 065
     Dates: start: 20040101
  8. ALBUTEROL SULFATE [Concomitant]
     Route: 065
     Dates: start: 20040101
  9. FELODIPINE [Concomitant]
     Route: 065
     Dates: start: 20040101
  10. SOTALOL HYDROCHLORIDE [Concomitant]
     Route: 065
     Dates: start: 20040301
  11. LEVOCETIRIZINE HYDROCHLORIDE [Concomitant]
     Route: 065
     Dates: start: 20040501
  12. AMOXICILLIN AND CLAVULANATE POTASSIUM [Concomitant]
     Route: 065
     Dates: start: 20040501
  13. AZITHROMYCIN [Concomitant]
     Route: 065
     Dates: start: 20040601

REACTIONS (2)
  - CEREBRAL ISCHAEMIA [None]
  - TRANSIENT ISCHAEMIC ATTACK [None]
